FAERS Safety Report 6103376-2 (Version None)
Quarter: 2009Q1

REPORT INFORMATION
  Report Type: 
  Country: None (occurrence: None)
  Receive Date: 20090302
  Receipt Date: 20090212
  Transmission Date: 20090719
  Serious: Yes (Death)
  Sender: FDA-Public Use
  Company Number: 1000004916

PATIENT
  Age: 29 Year
  Sex: Male

DRUGS (6)
  1. PROPRANOLOL ER [Suspect]
     Dosage: ORAL
     Route: 048
  2. METOPROLOL TARTRATE [Suspect]
     Dosage: ORAL
     Route: 048
  3. LISINOPRIL [Suspect]
     Dosage: ORAL
     Route: 048
  4. MECLIZINE [Suspect]
     Dosage: ORAL
     Route: 048
  5. ASPIRIN [Suspect]
     Dosage: ORAL
     Route: 048
  6. PROMETHAZINE [Suspect]
     Dosage: ORAL
     Route: 048

REACTIONS (4)
  - CARDIAC ARREST [None]
  - COMPLETED SUICIDE [None]
  - MULTIPLE DRUG OVERDOSE INTENTIONAL [None]
  - RESPIRATORY ARREST [None]
